FAERS Safety Report 10007819 (Version 1)
Quarter: 2014Q1

REPORT INFORMATION
  Report Type: Spontaneous
  Country: US (occurrence: None)
  Receive Date: 20140311
  Receipt Date: 20140311
  Transmission Date: 20141002
  Serious: Yes (Other)
  Sender: FDA-Public Use
  Company Number: 2014-US-002355

PATIENT
  Age: 77 Year
  Sex: Female

DRUGS (5)
  1. XYREM [Suspect]
     Indication: NARCOLEPSY
     Route: 048
     Dates: start: 20140211, end: 201402
  2. XYREM [Suspect]
     Indication: CATAPLEXY
     Route: 048
     Dates: start: 20140211, end: 201402
  3. TOPAMAX (TOPIRAMATE) [Suspect]
     Indication: CONCUSSION
  4. ZOLMITRIPTAN [Suspect]
     Indication: PRODUCT USED FOR UNKNOWN INDICATION
  5. POTASSIUM BICARBONATE\POTASSIUM CHLORIDE [Suspect]
     Indication: BLOOD POTASSIUM DECREASED
     Dates: start: 20140217, end: 201402

REACTIONS (7)
  - Drug interaction [None]
  - Blood potassium decreased [None]
  - Palpitations [None]
  - Feeling cold [None]
  - Hypoaesthesia [None]
  - Thinking abnormal [None]
  - Headache [None]
